FAERS Safety Report 10464552 (Version 2)
Quarter: 2014Q4

REPORT INFORMATION
  Report Type: Spontaneous
  Country: DE (occurrence: DE)
  Receive Date: 20140919
  Receipt Date: 20141030
  Transmission Date: 20150528
  Serious: Yes (Death, Other)
  Sender: FDA-Public Use
  Company Number: DE-UCBSA-2014011727

PATIENT
  Age: 75 Year
  Sex: Female

DRUGS (27)
  1. MUCOSOLVAN [Concomitant]
     Active Substance: AMBROXOL\CLENBUTEROL
     Dosage: 15MG (1-1-1-0)
  2. NOVALGIN [Concomitant]
     Active Substance: METAMIZOLE SODIUM
     Dosage: 1G (1-1-1-0),
  3. PREDNISOLONE. [Concomitant]
     Active Substance: PREDNISOLONE
     Dosage: 10MG (1-0-0-0),
  4. AMLODIPINE [Concomitant]
     Active Substance: AMLODIPINE BESYLATE
     Dosage: 10MG (0-0-1-0),
  5. CORVATON [Concomitant]
     Active Substance: MOLSIDOMINE
     Dosage: 8MG (1-0-1-0),
  6. ALENDRONIC ACID [Concomitant]
     Active Substance: ALENDRONIC ACID
     Dosage: 70MG (1-0-0-0, THURSDAYS),
  7. SIMVASTATIN. [Concomitant]
     Active Substance: SIMVASTATIN
     Dosage: 40MG (0-0-1-0),
  8. VIMPAT [Suspect]
     Active Substance: LACOSAMIDE
     Indication: STATUS EPILEPTICUS
     Dosage: 400 MG, UNK
     Route: 048
     Dates: start: 201310
  9. GABAPENTIN. [Suspect]
     Active Substance: GABAPENTIN
     Dosage: 800 MG, 2X/DAY (BID)
  10. EBRANTIL [Concomitant]
     Active Substance: URAPIDIL
     Dosage: 30MG (1-0-0-0)
  11. PANTOZOL [Concomitant]
     Active Substance: PANTOPRAZOLE SODIUM
     Dosage: 40MG (0-0-1-0),
  12. LEVEMIR [Concomitant]
     Active Substance: INSULIN DETEMIR
  13. LEVETIRACETAM. [Suspect]
     Active Substance: LEVETIRACETAM
     Indication: STATUS EPILEPTICUS
     Dosage: 1000 MG, 3X/DAY (TID)
  14. CO-DIOVAN [Concomitant]
     Active Substance: HYDROCHLOROTHIAZIDE\VALSARTAN
     Dosage: 320/25MG (1-0-0-0),
  15. CONCOR [Concomitant]
     Active Substance: BISOPROLOL FUMARATE
     Dosage: 2.5MG (1-0-0-0)
  16. CLEXANE [Concomitant]
     Active Substance: ENOXAPARIN SODIUM
     Dosage: 0.7ML S.C. (1-0-1-0)
  17. MARCOUMAR [Concomitant]
     Active Substance: PHENPROCOUMON
  18. CLOPIDOGREL [Concomitant]
     Active Substance: CLOPIDOGREL BISULFATE
     Dosage: 75MG (1-0-0-0)
  19. DEKRISTOL [Concomitant]
     Active Substance: CHOLECALCIFEROL
     Dosage: 20,000IU (1-0-0-0, EVERY 14 DAYS, FRIDAYS),
  20. VIMPAT [Suspect]
     Active Substance: LACOSAMIDE
     Indication: STATUS EPILEPTICUS
     Dosage: 200 MG, 2X/DAY (BID)
     Route: 042
     Dates: start: 20131009, end: 20131015
  21. VIMPAT [Suspect]
     Active Substance: LACOSAMIDE
     Indication: OFF LABEL USE
  22. KLACID [Concomitant]
     Active Substance: CLARITHROMYCIN
  23. ASPIRIN. [Concomitant]
     Active Substance: ASPIRIN
     Dosage: 100MG (1-0-0-0),
  24. METFORMIN [Concomitant]
     Active Substance: METFORMIN HYDROCHLORIDE
     Dosage: 1000MG (1-0-1-0, SUSPENDED),
  25. TAZOBAC [Concomitant]
     Active Substance: PIPERACILLIN SODIUM\TAZOBACTAM SODIUM
     Dosage: UNK
     Dates: end: 20131012
  26. MADOPAR [Concomitant]
     Active Substance: BENSERAZIDE HYDROCHLORIDE\LEVODOPA
     Dosage: 100/25MG (0-0-0-1),
  27. HUMINSULIN [Concomitant]
     Dosage: IU S.C. (28-18-18-0, SUSPENDED),

REACTIONS (4)
  - Atrioventricular block first degree [Fatal]
  - Drug ineffective for unapproved indication [Unknown]
  - Cardiac arrest [Fatal]
  - Off label use [Unknown]

NARRATIVE: CASE EVENT DATE: 201310
